FAERS Safety Report 21883804 (Version 1)
Quarter: 2023Q1

REPORT INFORMATION
  Report Type: Spontaneous
  Country: US (occurrence: US)
  Receive Date: 20230119
  Receipt Date: 20230119
  Transmission Date: 20230417
  Serious: No
  Sender: FDA-Public Use
  Company Number: US-STRIDES ARCOLAB LIMITED-2022SP014477

PATIENT
  Age: 65 Year
  Sex: Male

DRUGS (2)
  1. HYDROCODONE BITARTRATE AND ACETAMINOPHEN [Suspect]
     Active Substance: ACETAMINOPHEN\HYDROCODONE BITARTRATE
     Indication: Spinal osteoarthritis
     Dosage: UNK; TOOK 3-4 TABLETS PER DAY
     Route: 048
  2. HYDROCODONE BITARTRATE AND ACETAMINOPHEN [Suspect]
     Active Substance: ACETAMINOPHEN\HYDROCODONE BITARTRATE
     Dosage: UNK; REDUCED TO ONE-TO-TWO TABLETS PER DAY PER DAY AFTER SPINAL CORD STIMULATION
     Route: 065

REACTIONS (2)
  - Constipation [Unknown]
  - Off label use [Unknown]
